FAERS Safety Report 22693088 (Version 2)
Quarter: 2024Q3

REPORT INFORMATION
  Report Type: Spontaneous
  Country: US (occurrence: US)
  Receive Date: 20230711
  Receipt Date: 20240722
  Transmission Date: 20241016
  Serious: No
  Sender: ASTELLAS
  Company Number: US-ASTELLAS-2023US012538

PATIENT
  Age: 79 Year
  Sex: Female

DRUGS (2)
  1. MYRBETRIQ [Suspect]
     Active Substance: MIRABEGRON
     Indication: Product used for unknown indication
     Route: 065
     Dates: start: 202212
  2. MYRBETRIQ [Suspect]
     Active Substance: MIRABEGRON
     Dosage: 25 MG, 3 DAYS IN A ROW DURING THE WEEK
     Route: 065

REACTIONS (8)
  - Respiratory disorder [Unknown]
  - Middle insomnia [Unknown]
  - Eye infection [Unknown]
  - Cough [Unknown]
  - Dry eye [Unknown]
  - Sinusitis [Unknown]
  - Dry mouth [Unknown]
  - Inappropriate schedule of product administration [Unknown]

NARRATIVE: CASE EVENT DATE: 20230101
